FAERS Safety Report 5383904-5 (Version None)
Quarter: 2007Q3

REPORT INFORMATION
  Report Type: 
  Country: None (occurrence: None)
  Receive Date: 20070702
  Receipt Date: 20070424
  Transmission Date: 20080115
  Serious: No
  Sender: FDA-Public Use
  Company Number: 2007PV032854

PATIENT
  Age: 50 Year
  Sex: Female

DRUGS (7)
  1. SYMLIN [Suspect]
     Indication: TYPE 1 DIABETES MELLITUS
     Dosage: 60 MCG;TID;SC / 45 MCG;TID;SC /  30 MCG;TID;SC /  15 MCG;TID;SC
     Route: 058
     Dates: start: 20050101, end: 20050101
  2. SYMLIN [Suspect]
     Indication: TYPE 1 DIABETES MELLITUS
     Dosage: 60 MCG;TID;SC / 45 MCG;TID;SC /  30 MCG;TID;SC /  15 MCG;TID;SC
     Route: 058
     Dates: start: 20050101, end: 20050101
  3. SYMLIN [Suspect]
     Indication: TYPE 1 DIABETES MELLITUS
     Dosage: 60 MCG;TID;SC / 45 MCG;TID;SC /  30 MCG;TID;SC /  15 MCG;TID;SC
     Route: 058
     Dates: start: 20050901, end: 20050101
  4. SYMLIN [Suspect]
     Indication: TYPE 1 DIABETES MELLITUS
     Dosage: 60 MCG;TID;SC / 45 MCG;TID;SC /  30 MCG;TID;SC /  15 MCG;TID;SC
     Route: 058
     Dates: start: 20050101, end: 20051020
  5. LANTUS [Concomitant]
  6. HUMALOG [Concomitant]
  7. BYETTA [Concomitant]

REACTIONS (3)
  - BLOOD GLUCOSE INCREASED [None]
  - DRUG INEFFECTIVE [None]
  - FEELING ABNORMAL [None]
